FAERS Safety Report 23516912 (Version 1)
Quarter: 2024Q1

REPORT INFORMATION
  Report Type: Spontaneous
  Country: US (occurrence: US)
  Receive Date: 20240213
  Receipt Date: 20240213
  Transmission Date: 20240410
  Serious: Yes (Hospitalization, Other)
  Sender: FDA-Public Use
  Company Number: None

PATIENT
  Age: 73 Year
  Sex: Male

DRUGS (9)
  1. LINEZOLID [Suspect]
     Active Substance: LINEZOLID
     Indication: Enterobacter infection
     Dosage: 600 MILLIGRAM, BID (EVERY 12 DAY)
     Route: 065
  2. LINEZOLID [Suspect]
     Active Substance: LINEZOLID
     Indication: Staphylococcal infection
  3. LINEZOLID [Suspect]
     Active Substance: LINEZOLID
     Indication: Enterococcal infection
  4. CIPROFLOXACIN [Concomitant]
     Active Substance: CIPROFLOXACIN
     Indication: Staphylococcal infection
     Dosage: 500 MILLIGRAM, BID (EVERY 12 DAY)
     Route: 065
  5. CIPROFLOXACIN [Concomitant]
     Active Substance: CIPROFLOXACIN
     Indication: Enterococcal infection
  6. CIPROFLOXACIN [Concomitant]
     Active Substance: CIPROFLOXACIN
     Indication: Enterobacter infection
  7. TEDIZOLID [Concomitant]
     Active Substance: TEDIZOLID
     Indication: Staphylococcal infection
     Dosage: 200 MILLIGRAM, QD (EVERY 1 DAY)
     Route: 065
  8. TEDIZOLID [Concomitant]
     Active Substance: TEDIZOLID
     Indication: Enterococcal infection
  9. TEDIZOLID [Concomitant]
     Active Substance: TEDIZOLID
     Indication: Enterobacter infection

REACTIONS (2)
  - Lactic acidosis [Recovered/Resolved]
  - Thrombocytopenia [Recovered/Resolved]
